FAERS Safety Report 6625266-9 (Version None)
Quarter: 2010Q1

REPORT INFORMATION
  Report Type: 
  Country: None (occurrence: None)
  Receive Date: 20100310
  Receipt Date: 20090914
  Transmission Date: 20100710
  Serious: No
  Sender: FDA-Public Use
  Company Number: US-BIOGENIDEC-2009BI029163

PATIENT
  Age: 67 Year
  Sex: Female

DRUGS (2)
  1. AVONEX [Suspect]
     Indication: MULTIPLE SCLEROSIS
     Route: 030
     Dates: start: 19961201, end: 20030101
  2. AVONEX [Suspect]
     Route: 030
     Dates: start: 20030101

REACTIONS (5)
  - ESSENTIAL THROMBOCYTHAEMIA [None]
  - GENE MUTATION IDENTIFICATION TEST POSITIVE [None]
  - MULTIPLE SCLEROSIS RELAPSE [None]
  - NEUROTOXICITY [None]
  - PLATELET COUNT INCREASED [None]
